FAERS Safety Report 22066182 (Version 2)
Quarter: 2023Q1

REPORT INFORMATION
  Report Type: Spontaneous
  Country: CH (occurrence: CH)
  Receive Date: 20230306
  Receipt Date: 20230317
  Transmission Date: 20230418
  Serious: Yes (Hospitalization, Other)
  Sender: FDA-Public Use
  Company Number: CH-ALLERGAN-2305248US

PATIENT
  Sex: Female

DRUGS (5)
  1. BOTOX [Suspect]
     Active Substance: ONABOTULINUMTOXINA
     Indication: Salivary hypersecretion
     Dosage: UNK UNK, SINGLE
  2. CARBIDOPA\LEVODOPA [Suspect]
     Active Substance: CARBIDOPA\LEVODOPA
     Indication: Parkinson^s disease
     Dosage: UNK
     Dates: start: 20220221, end: 20220531
  3. CARBIDOPA\LEVODOPA [Suspect]
     Active Substance: CARBIDOPA\LEVODOPA
     Dosage: MD: 4.8 ML, CRD: 3.5 ML/H, ED: 3.0 ML
     Dates: start: 20220531
  4. CARBIDOPA\LEVODOPA [Suspect]
     Active Substance: CARBIDOPA\LEVODOPA
     Dosage: MD:2 ML, CRD: 2.4 ML/H, ED: 1 ML
     Dates: start: 20230222
  5. CLOZAPINE [Concomitant]
     Active Substance: CLOZAPINE

REACTIONS (9)
  - Hallucination [Recovered/Resolved]
  - Psychotic disorder [Unknown]
  - Akinesia [Not Recovered/Not Resolved]
  - Dizziness [Recovered/Resolved]
  - Salivary hypersecretion [Recovering/Resolving]
  - Fall [Recovered/Resolved]
  - Fatigue [Not Recovered/Not Resolved]
  - Off label use [Unknown]
  - Speech disorder [Not Recovered/Not Resolved]

NARRATIVE: CASE EVENT DATE: 20220101
